FAERS Safety Report 7110406-8 (Version None)
Quarter: 2010Q4

REPORT INFORMATION
  Report Type: 
  Country: None (occurrence: None)
  Receive Date: 20101118
  Receipt Date: 20101109
  Transmission Date: 20110411
  Serious: Yes (Hospitalization)
  Sender: FDA-Public Use
  Company Number: PHHO2006DE20679

PATIENT
  Sex: Male
  Weight: 78.9 kg

DRUGS (5)
  1. SIMULECT [Suspect]
     Indication: LIVER TRANSPLANT
     Dosage: 20 MG, ONCE/SINGLE
     Route: 042
     Dates: start: 20061115, end: 20061115
  2. CERTICAN [Suspect]
     Indication: LIVER TRANSPLANT
     Dosage: NO TREATMENT
  3. CERTICAN [Suspect]
     Dosage: 5.5 MG DAILY
     Route: 048
     Dates: start: 20061218
  4. PROGRAF [Concomitant]
     Indication: LIVER TRANSPLANT
     Dosage: 4 MG, BID
     Route: 048
     Dates: start: 20061111
  5. PROGRAF [Concomitant]
     Dosage: 0.5 MG, BID
     Route: 048

REACTIONS (5)
  - C-REACTIVE PROTEIN INCREASED [None]
  - DIARRHOEA [None]
  - GASTROINTESTINAL INFECTION [None]
  - HEPATIC HAEMATOMA [None]
  - PYREXIA [None]
